FAERS Safety Report 9999550 (Version 1)
Quarter: 2014Q1

REPORT INFORMATION
  Report Type: Spontaneous
  Country: US (occurrence: None)
  Receive Date: 20140311
  Receipt Date: 20140311
  Transmission Date: 20141002
  Serious: Yes (Hospitalization)
  Sender: FDA-Public Use
  Company Number: None

PATIENT
  Age: 58 Year
  Sex: Female
  Weight: 63.6 kg

DRUGS (1)
  1. LITHIUM [Suspect]
     Dates: start: 20130911, end: 20131017

REACTIONS (3)
  - Confusional state [None]
  - Tachypnoea [None]
  - Respiratory depression [None]
